FAERS Safety Report 10043836 (Version 1)
Quarter: 2014Q1

REPORT INFORMATION
  Report Type: Spontaneous
  Country: US (occurrence: US)
  Receive Date: 20140328
  Receipt Date: 20140328
  Transmission Date: 20141002
  Serious: No
  Sender: FDA-Public Use
  Company Number: US-009507513-1403USA006663

PATIENT
  Sex: Female

DRUGS (3)
  1. MIRALAX [Suspect]
     Indication: ABDOMINAL PAIN
     Dosage: 34 G, UNKNOWN
     Route: 048
     Dates: start: 201403
  2. MIRALAX [Suspect]
     Indication: FLATULENCE
  3. MIRALAX [Suspect]
     Indication: CONSTIPATION

REACTIONS (1)
  - Drug ineffective [Unknown]
